FAERS Safety Report 15866510 (Version 1)
Quarter: 2019Q1

REPORT INFORMATION
  Report Type: Spontaneous
  Country: US (occurrence: US)
  Receive Date: 20190125
  Receipt Date: 20190125
  Transmission Date: 20190417
  Serious: No
  Sender: FDA-Public Use
  Company Number: US-B.I. PHARMACEUTICALS,INC./RIDGEFIELD-2019-BI-003447

PATIENT
  Sex: Female

DRUGS (1)
  1. ATROVENT [Suspect]
     Active Substance: IPRATROPIUM BROMIDE
     Indication: NASAL CONGESTION
     Dosage: 1 PUFF 4 TIMES A DAY IN NASAL PASSAGES USING BABY NIPPLE;  ;FORM OF ADMIN INHALATION AEROSOL
     Route: 045
     Dates: start: 20190114

REACTIONS (2)
  - Off label use [Unknown]
  - Medication error [Unknown]

NARRATIVE: CASE EVENT DATE: 20190114
